FAERS Safety Report 5208713-9 (Version None)
Quarter: 2007Q1

REPORT INFORMATION
  Report Type: 
  Country: None (occurrence: None)
  Receive Date: 20070116
  Receipt Date: 20070105
  Transmission Date: 20070707
  Serious: Yes (Other)
  Sender: FDA-Public Use
  Company Number: PHNR2007AU00454

PATIENT
  Sex: Female

DRUGS (5)
  1. LAMICTAL [Concomitant]
  2. LEXOTAN [Concomitant]
  3. TEGRETOL [Suspect]
     Indication: COMPLEX PARTIAL SEIZURES
     Dosage: 200 MG, BID
     Route: 048
  4. TEGRETOL [Suspect]
     Dosage: 100 MG, BID
     Route: 048
  5. TEGRETOL [Suspect]
     Dosage: 200 MG, BID
     Route: 048
     Dates: start: 20061227

REACTIONS (12)
  - BLEPHAROSPASM [None]
  - CONTUSION [None]
  - DELUSION [None]
  - DIARRHOEA [None]
  - DRUG DISPENSING ERROR [None]
  - DYSARTHRIA [None]
  - DYSKINESIA [None]
  - EAR PAIN [None]
  - FALL [None]
  - FEELING ABNORMAL [None]
  - HALLUCINATION [None]
  - VISION BLURRED [None]
